FAERS Safety Report 16107779 (Version 1)
Quarter: 2019Q1

REPORT INFORMATION
  Report Type: Spontaneous
  Country: BE (occurrence: BE)
  Receive Date: 20190322
  Receipt Date: 20190322
  Transmission Date: 20190418
  Serious: Yes (Other)
  Sender: FDA-Public Use
  Company Number: BE-PFIZER INC-2019065337

PATIENT

DRUGS (1)
  1. XALKORI [Suspect]
     Active Substance: CRIZOTINIB
     Indication: ANAPLASTIC LARGE CELL LYMPHOMA T- AND NULL-CELL TYPES
     Dosage: UNK

REACTIONS (11)
  - Leukopenia [Unknown]
  - Gastrointestinal wall thickening [Unknown]
  - Pneumonia [Unknown]
  - Renal impairment [Unknown]
  - Product use in unapproved indication [Unknown]
  - Incorrect route of product administration [Unknown]
  - Haematuria [Unknown]
  - Viral infection [Unknown]
  - Abdominal pain [Unknown]
  - Cystitis haemorrhagic [Unknown]
  - Wrong technique in product usage process [Unknown]
